FAERS Safety Report 15530564 (Version 2)
Quarter: 2018Q4

REPORT INFORMATION
  Report Type: Report from Study
  Country: US (occurrence: US)
  Receive Date: 20181018
  Receipt Date: 20181105
  Transmission Date: 20190205
  Serious: Yes (Death, Hospitalization, Other)
  Sender: FDA-Public Use
  Company Number: US-PFIZER INC-2018221311

PATIENT
  Age: 55 Year
  Sex: Female

DRUGS (2)
  1. FEMARA [Concomitant]
     Active Substance: LETROZOLE
     Dosage: UNK
     Dates: start: 20170323
  2. IBRANCE [Suspect]
     Active Substance: PALBOCICLIB
     Indication: BREAST CANCER METASTATIC
     Dosage: 125 MG, CYCLIC (DAILY, 21 DAYS EVERY 28 DAYS)
     Route: 048
     Dates: start: 20180523, end: 20180717

REACTIONS (7)
  - Sepsis [Unknown]
  - Nasopharyngitis [Unknown]
  - Fatigue [Not Recovered/Not Resolved]
  - Radiation injury [Not Recovered/Not Resolved]
  - White blood cell count decreased [Unknown]
  - Nausea [Unknown]
  - Neoplasm progression [Fatal]

NARRATIVE: CASE EVENT DATE: 2018
